FAERS Safety Report 5778328-2 (Version None)
Quarter: 2008Q2

REPORT INFORMATION
  Report Type: 
  Country: None (occurrence: None)
  Receive Date: 20080619
  Receipt Date: 20080609
  Transmission Date: 20081010
  Serious: Yes (Other)
  Sender: FDA-Public Use
  Company Number: US-ROCHE-565255

PATIENT
  Sex: Female
  Weight: 38.1 kg

DRUGS (1)
  1. ACCUTANE [Suspect]
     Indication: ACNE
     Route: 065
     Dates: start: 20061012, end: 20070522

REACTIONS (1)
  - EPIPHYSES PREMATURE FUSION [None]
